FAERS Safety Report 4429751-X (Version None)
Quarter: 2004Q3

REPORT INFORMATION
  Report Type: 
  Country: None (occurrence: None)
  Receive Date: 20040816
  Receipt Date: 20040429
  Transmission Date: 20050211
  Serious: Yes (Hospitalization)
  Sender: FDA-Public Use
  Company Number: GBWYE929726JUL04

PATIENT
  Age: 11 Year
  Sex: Female

DRUGS (1)
  1. MINOCIN [Suspect]
     Indication: ACNE

REACTIONS (3)
  - BINOCULAR EYE MOVEMENT DISORDER [None]
  - BRAIN OEDEMA [None]
  - INJURY [None]
